FAERS Safety Report 12284366 (Version 1)
Quarter: 2016Q2

REPORT INFORMATION
  Report Type: Spontaneous
  Country: US (occurrence: US)
  Receive Date: 20160420
  Receipt Date: 20160420
  Transmission Date: 20160815
  Serious: No
  Sender: FDA-Public Use
  Company Number: PHEH2016US009610

PATIENT
  Sex: Female

DRUGS (1)
  1. TOBI PODHALER [Suspect]
     Active Substance: TOBRAMYCIN
     Indication: CYSTIC FIBROSIS
     Dosage: 112 MG, BID (28 DAYS ON AND 28 DAYS OFF)
     Route: 055
     Dates: start: 20140101, end: 201604

REACTIONS (2)
  - Chest discomfort [Unknown]
  - Tinnitus [Unknown]
